FAERS Safety Report 14931654 (Version 1)
Quarter: 2018Q2

REPORT INFORMATION
  Report Type: Spontaneous
  Country: US (occurrence: US)
  Receive Date: 20180524
  Receipt Date: 20180524
  Transmission Date: 20180711
  Serious: Yes (Hospitalization, Other)
  Sender: FDA-Public Use
  Company Number: US-CIPLA (EU) LIMITED-2018US17959

PATIENT

DRUGS (12)
  1. VIIBRYD [Concomitant]
     Active Substance: VILAZODONE HYDROCHLORIDE
     Indication: AFFECTIVE DISORDER
     Dosage: 10 MG, QD
     Route: 065
     Dates: start: 2015, end: 2016
  2. PROPRANOLOL [Concomitant]
     Active Substance: PROPRANOLOL HYDROCHLORIDE
     Indication: HYPERTENSION
     Dosage: 60 MG, QD
     Route: 065
     Dates: start: 2016
  3. KLONOPIN [Concomitant]
     Active Substance: CLONAZEPAM
     Indication: ANXIETY
     Dosage: 1 MG, TID
     Route: 065
     Dates: start: 2015
  4. VIIBRYD [Concomitant]
     Active Substance: VILAZODONE HYDROCHLORIDE
     Dosage: 20 MG, QD
     Route: 065
     Dates: start: 2016
  5. KLONOPIN [Concomitant]
     Active Substance: CLONAZEPAM
     Indication: TREMOR
  6. FLEXERIL [Concomitant]
     Active Substance: CYCLOBENZAPRINE HYDROCHLORIDE
     Indication: MUSCULOSKELETAL PAIN
     Dosage: 10 MG, TID
     Route: 065
     Dates: start: 2015
  7. SUMATRIPTAN. [Concomitant]
     Active Substance: SUMATRIPTAN
     Indication: MIGRAINE
     Dosage: 50 MG, QD, AS NEEDED
     Route: 065
     Dates: start: 2016
  8. ZIRTEC [Concomitant]
     Active Substance: CETIRIZINE HYDROCHLORIDE
     Indication: SEASONAL ALLERGY
     Dosage: 10 MG, QD
     Route: 065
     Dates: start: 2016
  9. NORCO [Concomitant]
     Active Substance: ACETAMINOPHEN\HYDROCODONE BITARTRATE
     Indication: PAIN
     Dosage: 10/325 MG, TID
     Route: 065
     Dates: start: 2016
  10. TOPIRAMATE. [Suspect]
     Active Substance: TOPIRAMATE
     Indication: MIGRAINE
     Dosage: 50 MG, BID
     Route: 048
     Dates: start: 2017
  11. FAMOTIDINE. [Concomitant]
     Active Substance: FAMOTIDINE
     Indication: ABDOMINAL DISCOMFORT
     Dosage: 20 MG, QD
     Route: 065
     Dates: start: 2017
  12. VITAMIN D                          /00107901/ [Concomitant]
     Active Substance: ERGOCALCIFEROL
     Indication: SUPPLEMENTATION THERAPY
     Dosage: 1.25 MG/5000 UNITS, ONCE A WEEK
     Route: 065
     Dates: start: 2015

REACTIONS (10)
  - Suicide attempt [Recovering/Resolving]
  - Suicidal ideation [Recovered/Resolved]
  - Seizure [Recovered/Resolved]
  - Muscle spasms [Recovered/Resolved]
  - Heat exhaustion [Recovering/Resolving]
  - Hypohidrosis [Recovering/Resolving]
  - Dizziness [Recovered/Resolved]
  - Depression [Recovering/Resolving]
  - Memory impairment [Recovering/Resolving]
  - Back pain [Recovering/Resolving]

NARRATIVE: CASE EVENT DATE: 2017
